FAERS Safety Report 5020121-2 (Version None)
Quarter: 2006Q2

REPORT INFORMATION
  Report Type: 
  Country: None (occurrence: None)
  Receive Date: 20060602
  Receipt Date: 20060519
  Transmission Date: 20061013
  Serious: Yes (Life-Threatening, Hospitalization)
  Sender: FDA-Public Use
  Company Number: 2006MP000733

PATIENT
  Age: 69 Year
  Sex: Female

DRUGS (6)
  1. AGGRASTAT [Suspect]
     Dosage: 36 ML;QH;IV
     Route: 042
     Dates: start: 20060122, end: 20060122
  2. HEPARIN SODIUM [Suspect]
     Dosage: 100 IU;QH;IV
     Route: 042
     Dates: start: 20060121, end: 20060123
  3. EZETROL [Concomitant]
  4. KARVEZIDE [Concomitant]
  5. PLAVIX [Concomitant]
  6. PRAVASTATIN SODIUM [Concomitant]

REACTIONS (7)
  - CHILLS [None]
  - DYSPNOEA [None]
  - MALAISE [None]
  - PERIPHERAL COLDNESS [None]
  - PLATELET COUNT DECREASED [None]
  - THROMBOCYTOPENIA [None]
  - TREMOR [None]
